FAERS Safety Report 6014943-9 (Version None)
Quarter: 2008Q4

REPORT INFORMATION
  Report Type: 
  Country: None (occurrence: None)
  Receive Date: 20081219
  Receipt Date: 20081211
  Transmission Date: 20090506
  Serious: Yes (Hospitalization, Other)
  Sender: FDA-Public Use
  Company Number: US-AMGEN-QUU318137

PATIENT
  Sex: Female
  Weight: 54.5 kg

DRUGS (2)
  1. ENBREL [Suspect]
     Indication: PSORIATIC ARTHROPATHY
     Route: 058
     Dates: start: 20041104, end: 20081112
  2. ENBREL [Suspect]
     Indication: PSORIASIS

REACTIONS (11)
  - ABDOMINOPLASTY [None]
  - BODY TEMPERATURE INCREASED [None]
  - COCCIDIOIDOMYCOSIS [None]
  - FATIGUE [None]
  - HEADACHE [None]
  - HYPOAESTHESIA [None]
  - IMPAIRED HEALING [None]
  - INCISION SITE HAEMORRHAGE [None]
  - PARAESTHESIA [None]
  - RASH [None]
  - WOUND INFECTION PSEUDOMONAS [None]
